FAERS Safety Report 25945875 (Version 4)
Quarter: 2025Q4

REPORT INFORMATION
  Report Type: Spontaneous
  Country: US (occurrence: US)
  Receive Date: 20251021
  Receipt Date: 20251110
  Transmission Date: 20260117
  Serious: No
  Sender: SANOFI AVENTIS
  Company Number: US-SANOFI-02690003

PATIENT
  Age: 66 Year
  Sex: Male

DRUGS (6)
  1. TOUJEO [Suspect]
     Active Substance: INSULIN GLARGINE
     Indication: Diabetes mellitus
     Dosage: 50 IU, QD
     Route: 065
     Dates: start: 2019
  2. TOUJEO [Suspect]
     Active Substance: INSULIN GLARGINE
     Dosage: 60 IU, QD
     Route: 065
  3. TOUJEO [Suspect]
     Active Substance: INSULIN GLARGINE
     Dosage: 28 IU, QD
     Route: 065
  4. TOUJEO [Suspect]
     Active Substance: INSULIN GLARGINE
     Dosage: 65 IU, QD
  5. TOUJEO [Suspect]
     Active Substance: INSULIN GLARGINE
     Dosage: 60IU PER DAY
     Route: 058
  6. TOUJEO [Suspect]
     Active Substance: INSULIN GLARGINE
     Dosage: 28IU PER DAY
     Route: 058

REACTIONS (4)
  - Rash pruritic [Recovered/Resolved]
  - Blood glucose increased [Unknown]
  - Drug ineffective [Unknown]
  - Intentional product misuse [Unknown]
